FAERS Safety Report 6880458-9 (Version None)
Quarter: 2010Q3

REPORT INFORMATION
  Report Type: 
  Country: None (occurrence: None)
  Receive Date: 20100727
  Receipt Date: 20100709
  Transmission Date: 20110219
  Serious: Yes (Hospitalization)
  Sender: FDA-Public Use
  Company Number: A0866949A

PATIENT
  Age: 51 Year
  Sex: Male

DRUGS (2)
  1. AVANDIA [Suspect]
     Indication: DIABETES MELLITUS
     Dosage: 4MG UNKNOWN
     Route: 048
     Dates: start: 20021203, end: 20051227
  2. TOPROL-XL [Concomitant]
     Indication: HEART RATE IRREGULAR

REACTIONS (2)
  - ARRHYTHMIA [None]
  - CARDIAC ABLATION [None]
